FAERS Safety Report 21139130 (Version 1)
Quarter: 2022Q3

REPORT INFORMATION
  Report Type: Spontaneous
  Country: US (occurrence: None)
  Receive Date: 20220727
  Receipt Date: 20220727
  Transmission Date: 20221027
  Serious: Yes (Death, Hospitalization, Disabling)
  Sender: FDA-Public Use
  Company Number: None

PATIENT
  Age: 81 Year
  Sex: Male

DRUGS (2)
  1. ELIGARD [Suspect]
     Active Substance: LEUPROLIDE ACETATE
     Indication: Prostate cancer
     Dosage: OTHER QUANTITY : 1 INJECTION;?
     Route: 030
     Dates: start: 20211021, end: 20211021
  2. BICALUTAMIDE [Suspect]
     Active Substance: BICALUTAMIDE

REACTIONS (4)
  - Pain [None]
  - Bedridden [None]
  - Malignant neoplasm progression [None]
  - Gait inability [None]

NARRATIVE: CASE EVENT DATE: 20211021
